FAERS Safety Report 7628256-2 (Version None)
Quarter: 2011Q3

REPORT INFORMATION
  Report Type: 
  Country: None (occurrence: None)
  Receive Date: 20110722
  Receipt Date: 20110128
  Transmission Date: 20111222
  Serious: No
  Sender: FDA-Public Use
  Company Number: US-BAYER-2011-011821

PATIENT
  Age: 24 Year
  Sex: Female
  Weight: 56 kg

DRUGS (6)
  1. CELEBREX [Concomitant]
     Dosage: 50 MG, UNK
  2. BETASERON [Suspect]
     Dosage: 0.3 MG, UNK
     Route: 058
  3. LUNESTA [Concomitant]
     Dosage: 1 MG, UNK
  4. CONCERTA [Concomitant]
     Dosage: 18 MG, UNK
  5. MARINOL [Concomitant]
     Dosage: 5 MG, UNK
  6. IBUPROFEN [Concomitant]
     Dosage: 200 MG, UNK

REACTIONS (5)
  - PYREXIA [None]
  - DERMATITIS [None]
  - URINE ANALYSIS ABNORMAL [None]
  - NIGHT SWEATS [None]
  - RHINORRHOEA [None]
